FAERS Safety Report 21532933 (Version 2)
Quarter: 2025Q1

REPORT INFORMATION
  Report Type: Spontaneous
  Country: KR (occurrence: KR)
  Receive Date: 20221101
  Receipt Date: 20250310
  Transmission Date: 20250408
  Serious: Yes (Hospitalization, Other)
  Sender: AMGEN
  Company Number: KR-KYOWAKIRIN-2022AKK016592

PATIENT

DRUGS (5)
  1. NEULASTA [Suspect]
     Active Substance: PEGFILGRASTIM
     Indication: Breast cancer
     Route: 058
  2. TRASTUZUMAB [Suspect]
     Active Substance: TRASTUZUMAB
     Indication: Breast cancer
     Dosage: 600MG INJECTED SUBCUTANEOUSLY
     Route: 058
  3. PERTUZUMAB [Suspect]
     Active Substance: PERTUZUMAB
     Indication: Breast cancer
     Dosage: UNK UNK, 1X/3 WEEKS
     Route: 042
  4. ATEZOLIZUMAB [Suspect]
     Active Substance: ATEZOLIZUMAB
     Indication: Breast cancer
     Dosage: 1200 MG ADMINISTERED INTRAVENOUSLY
     Route: 042
  5. DOCETAXEL [Suspect]
     Active Substance: DOCETAXEL
     Indication: Breast cancer
     Dosage: 75MG/M2 ADMINISTERED INTRAVENOUSLY
     Route: 040

REACTIONS (27)
  - Pneumonia [Unknown]
  - Gastric ulcer [Unknown]
  - Febrile neutropenia [Unknown]
  - Neuropathy peripheral [Unknown]
  - Hepatitis [Unknown]
  - Encephalitis [Unknown]
  - Neutropenia [Unknown]
  - Pneumonitis [Unknown]
  - Nausea [Unknown]
  - Alanine aminotransferase increased [Unknown]
  - Back pain [Unknown]
  - Thrombocytopenia [Unknown]
  - Alopecia [Unknown]
  - Palmar-plantar erythrodysaesthesia syndrome [Unknown]
  - Infusion related reaction [Unknown]
  - Thyroid disorder [Unknown]
  - Mucosal inflammation [Unknown]
  - Oedema [Unknown]
  - Anaemia [Unknown]
  - Diarrhoea [Unknown]
  - Fatigue [Unknown]
  - Constipation [Unknown]
  - Vomiting [Unknown]
  - Pyrexia [Unknown]
  - Aspartate aminotransferase increased [Unknown]
  - Rash [Unknown]
  - Myalgia [Unknown]
